FAERS Safety Report 13921678 (Version 3)
Quarter: 2017Q4

REPORT INFORMATION
  Report Type: Spontaneous
  Country: FR (occurrence: FR)
  Receive Date: 20170830
  Receipt Date: 20171108
  Transmission Date: 20180320
  Serious: Yes (Hospitalization, Other)
  Sender: FDA-Public Use
  Company Number: FR-AMGEN-FRASP2017130526

PATIENT
  Age: 29 Year
  Sex: Female

DRUGS (7)
  1. ENBREL [Suspect]
     Active Substance: ETANERCEPT
     Indication: RHEUMATIC DISORDER
     Dosage: 1 DF, EVERY 2 WEEKS
     Route: 058
     Dates: start: 201512, end: 201512
  2. DAILY [Concomitant]
     Active Substance: ETHINYL ESTRADIOL\LEVONORGESTREL
     Dosage: UNK
  3. ESCITALOPRAM [Concomitant]
     Active Substance: ESCITALOPRAM OXALATE
     Dosage: UNK
  4. BROMAZEPAM [Concomitant]
     Active Substance: BROMAZEPAM
     Dosage: UNK
  5. IMODIUM [Concomitant]
     Active Substance: LOPERAMIDE HYDROCHLORIDE
     Dosage: UNK
  6. HUMIRA [Suspect]
     Active Substance: ADALIMUMAB
     Indication: RHEUMATIC DISORDER
     Dosage: 40 MG, EVERY 2 WEEKS
     Route: 058
     Dates: start: 201602, end: 201612
  7. CIMZIA [Suspect]
     Active Substance: CERTOLIZUMAB PEGOL
     Indication: RHEUMATIC DISORDER
     Dosage: 200 MG, EVERY 2 WEEKS
     Route: 058
     Dates: start: 201702

REACTIONS (13)
  - Muscular weakness [Unknown]
  - Gastritis erosive [Unknown]
  - Memory impairment [Not Recovered/Not Resolved]
  - Inflammatory bowel disease [Unknown]
  - Rheumatic disorder [Unknown]
  - Crohn^s disease [Unknown]
  - Diarrhoea [Unknown]
  - Disturbance in attention [Unknown]
  - Abdominal pain [Unknown]
  - General physical health deterioration [Unknown]
  - Asthenia [Unknown]
  - Aphasia [Unknown]
  - Uveitis [Recovered/Resolved]

NARRATIVE: CASE EVENT DATE: 2016
